FAERS Safety Report 14068129 (Version 1)
Quarter: 2017Q4

REPORT INFORMATION
  Report Type: Spontaneous
  Country: US (occurrence: US)
  Receive Date: 20171009
  Receipt Date: 20171009
  Transmission Date: 20180321
  Serious: Yes (Other)
  Sender: FDA-Public Use
  Company Number: None

PATIENT
  Age: 61 Year
  Sex: Female
  Weight: 103.5 kg

DRUGS (6)
  1. COMPLETE 50+ ADULT FORMULA MULTI-VITAMIN [Concomitant]
  2. LEVOTHYROXINE. [Concomitant]
     Active Substance: LEVOTHYROXINE
  3. TRESIBA [Suspect]
     Active Substance: INSULIN DEGLUDEC
     Indication: BLOOD GLUCOSE ABNORMAL
     Dosage: ?          QUANTITY:1 INJECTION(S);?
     Route: 058
     Dates: start: 20170929, end: 20170930
  4. VITAMIN D3 [Concomitant]
     Active Substance: CHOLECALCIFEROL
  5. HUMALOG [Concomitant]
     Active Substance: INSULIN LISPRO
  6. LEVEMIR [Suspect]
     Active Substance: INSULIN DETEMIR

REACTIONS (7)
  - Blood glucose increased [None]
  - Nausea [None]
  - Blood glucose decreased [None]
  - Gastritis [None]
  - Decreased appetite [None]
  - Muscle spasms [None]
  - Dysphonia [None]

NARRATIVE: CASE EVENT DATE: 20170929
